FAERS Safety Report 9351315 (Version 1)
Quarter: 2013Q2

REPORT INFORMATION
  Report Type: Spontaneous
  Country: TN (occurrence: TN)
  Receive Date: 20130617
  Receipt Date: 20130617
  Transmission Date: 20140414
  Serious: Yes (Other)
  Sender: FDA-Public Use
  Company Number: PHHY2013TN059519

PATIENT
  Sex: 0

DRUGS (6)
  1. VORICONAZOLE [Suspect]
     Indication: ASPERGILLUS INFECTION
     Dosage: 400 MG, UNK
  2. SIROLIMUS [Interacting]
     Dosage: 4 MG, UNK
  3. SIROLIMUS [Interacting]
     Dosage: 2 MG, UNK
  4. SIROLIMUS [Interacting]
     Dosage: 1 MG, UNK
  5. CICLOSPORIN [Concomitant]
  6. PREDNISONE [Concomitant]

REACTIONS (4)
  - Hyperlipidaemia [Recovered/Resolved]
  - Pancytopenia [Recovered/Resolved]
  - Renal failure [Recovered/Resolved]
  - Drug interaction [Unknown]
